FAERS Safety Report 13114491 (Version 10)
Quarter: 2017Q2

REPORT INFORMATION
  Report Type: Report from Study
  Country: US (occurrence: US)
  Receive Date: 20170113
  Receipt Date: 20170608
  Transmission Date: 20170830
  Serious: Yes (Hospitalization, Other)
  Sender: FDA-Public Use
  Company Number: US-PFIZER INC-2016596976

PATIENT
  Age: 74 Year
  Sex: Female

DRUGS (2)
  1. IBRANCE [Suspect]
     Active Substance: PALBOCICLIB
     Indication: BREAST CANCER
     Dosage: 125 MG, CYCLIC (DAILY FOR DAY 1- DAY 21 FOLLOWED BY 7 DAYS OFF)
     Route: 048
     Dates: start: 20161212, end: 20170109
  2. IBRANCE [Suspect]
     Active Substance: PALBOCICLIB
     Dosage: 125 MG, CYCLIC (DAILY FOR DAY 1- DAY 21 FOLLOWED BY 7 DAYS OFF)
     Route: 048
     Dates: start: 201701

REACTIONS (16)
  - Pneumonia [Unknown]
  - Therapeutic response unexpected [Unknown]
  - Leukopenia [Not Recovered/Not Resolved]
  - Dysphonia [Unknown]
  - Headache [Not Recovered/Not Resolved]
  - Cough [Not Recovered/Not Resolved]
  - Dyspnoea exertional [Not Recovered/Not Resolved]
  - Stomatitis [Unknown]
  - Fatigue [Not Recovered/Not Resolved]
  - Diarrhoea [Not Recovered/Not Resolved]
  - Anaemia [Not Recovered/Not Resolved]
  - Nausea [Not Recovered/Not Resolved]
  - Atelectasis [Unknown]
  - Pre-existing condition improved [Unknown]
  - Thrombocytopenia [Unknown]
  - Constipation [Not Recovered/Not Resolved]

NARRATIVE: CASE EVENT DATE: 201612
